FAERS Safety Report 19718465 (Version 1)
Quarter: 2021Q3

REPORT INFORMATION
  Report Type: Spontaneous
  Country: JP (occurrence: JP)
  Receive Date: 20210819
  Receipt Date: 20210819
  Transmission Date: 20211014
  Serious: Yes (Hospitalization, Other)
  Sender: FDA-Public Use
  Company Number: JP-PFIZER INC-2021557654

PATIENT
  Age: 30 Year
  Sex: Male

DRUGS (3)
  1. CELECOX [Suspect]
     Active Substance: CELECOXIB
     Route: 048
  2. AFLOQUALONE [Concomitant]
     Active Substance: AFLOQUALONE
  3. REBAMIPIDE [Concomitant]
     Active Substance: REBAMIPIDE

REACTIONS (9)
  - Pyrexia [Not Recovered/Not Resolved]
  - Malaise [Not Recovered/Not Resolved]
  - Myalgia [Unknown]
  - Lymphadenopathy [Unknown]
  - Pulmonary mass [Unknown]
  - Oropharyngeal pain [Unknown]
  - Viral infection [Unknown]
  - Drug eruption [Recovering/Resolving]
  - Toxic skin eruption [Unknown]

NARRATIVE: CASE EVENT DATE: 20210420
